FAERS Safety Report 20024471 (Version 1)
Quarter: 2021Q4

REPORT INFORMATION
  Report Type: Spontaneous
  Country: IT (occurrence: IT)
  Receive Date: 20211102
  Receipt Date: 20211102
  Transmission Date: 20220303
  Serious: Yes (Life-Threatening, Other)
  Sender: FDA-Public Use
  Company Number: None

PATIENT
  Age: 87 Year
  Sex: Female

DRUGS (6)
  1. KETOPROFEN [Suspect]
     Active Substance: KETOPROFEN
     Indication: Product used for unknown indication
     Dosage: 80 MILLIGRAM TOTAL
     Route: 048
     Dates: start: 20210729, end: 20210729
  2. TAVOR                              /00273201/ [Concomitant]
     Indication: Insomnia
     Dosage: 1.25 MILLIGRAM
     Route: 048
  3. PLAVIX [Concomitant]
     Active Substance: CLOPIDOGREL BISULFATE
     Dosage: 75 MILLIGRAM
     Route: 048
  4. LEVOTHYROXINE SODIUM [Concomitant]
     Active Substance: LEVOTHYROXINE SODIUM
     Indication: Hypothyroidism
     Dosage: 150 MICROGRAM
     Route: 048
  5. OLMESARTAN MEDOXOMIL [Concomitant]
     Active Substance: OLMESARTAN MEDOXOMIL
     Indication: Hypertension
     Dosage: UNK
  6. SINGULAIR [Concomitant]
     Active Substance: MONTELUKAST SODIUM
     Indication: Asthma
     Dosage: UNK

REACTIONS (7)
  - Blood pressure increased [Recovered/Resolved]
  - Psychomotor hyperactivity [Recovered/Resolved]
  - Wheezing [Recovered/Resolved]
  - Anaphylactic shock [Recovered/Resolved]
  - Dyspnoea [Recovered/Resolved]
  - Skin reaction [Recovered/Resolved]
  - Drug hypersensitivity [Recovered/Resolved]

NARRATIVE: CASE EVENT DATE: 20210729
